FAERS Safety Report 21067996 (Version 2)
Quarter: 2022Q3

REPORT INFORMATION
  Report Type: Spontaneous
  Country: GB (occurrence: None)
  Receive Date: 20220712
  Receipt Date: 20220715
  Transmission Date: 20221027
  Serious: Yes (Hospitalization)
  Sender: FDA-Public Use
  Company Number: GB-ROCHE-3133973

PATIENT
  Age: 51 Year
  Sex: Female

DRUGS (1)
  1. ATEZOLIZUMAB [Suspect]
     Active Substance: ATEZOLIZUMAB
     Indication: Breast cancer
     Route: 042

REACTIONS (4)
  - Breast cancer recurrent [Unknown]
  - Headache [Unknown]
  - Pyrexia [Unknown]
  - Off label use [Unknown]
